FAERS Safety Report 9702386 (Version 2)
Quarter: 2013Q4

REPORT INFORMATION
  Report Type: Spontaneous
  Country: IT (occurrence: IT)
  Receive Date: 20131121
  Receipt Date: 20131210
  Transmission Date: 20140711
  Serious: Yes (Other)
  Sender: FDA-Public Use
  Company Number: IT-TEVA-445425ISR

PATIENT
  Age: 84 Year
  Sex: Male

DRUGS (5)
  1. AMOXICILLIN TRIHYDRATE [Suspect]
     Dosage: 1 GRAM DAILY;
     Route: 048
     Dates: start: 20120720, end: 20120721
  2. XATRAL 2.5MG [Concomitant]
     Indication: BENIGN PROSTATIC HYPERPLASIA
  3. TAPAZOLE 5MG [Concomitant]
     Indication: HYPERTHYROIDISM
  4. RAMIPRIL [Concomitant]
     Indication: ESSENTIAL HYPERTENSION
  5. PANTORC 40MG [Concomitant]
     Dosage: GASTRORESISTANT TABLET

REACTIONS (3)
  - Hypersensitivity [Recovering/Resolving]
  - Lip oedema [Recovering/Resolving]
  - Oedema mucosal [Recovering/Resolving]
